FAERS Safety Report 16914116 (Version 2)
Quarter: 2019Q4

REPORT INFORMATION
  Report Type: Spontaneous
  Country: US (occurrence: US)
  Receive Date: 20191014
  Receipt Date: 20191023
  Transmission Date: 20200122
  Serious: No
  Sender: FDA-Public Use
  Company Number: US-PFIZER INC-2017419506

PATIENT
  Age: 65 Year
  Sex: Female
  Weight: 90.72 kg

DRUGS (6)
  1. FLEX TOUCH HUMALOG [Concomitant]
     Dosage: 12 IU, 3X/DAY (AFTER MEALS)
  2. LOSARTAN. [Concomitant]
     Active Substance: LOSARTAN
     Dosage: 75 MG, 1X/DAY (50 MG 1 1/2 1XDAILY)
  3. ATORVASTATIN [Concomitant]
     Active Substance: ATORVASTATIN
     Dosage: 8 MG, 1X/DAY (AT BED TIME)
  4. FLEX TOUCH LEVEMIR [Concomitant]
     Dosage: 30 IU, 1X/DAY (BEDTIME)
  5. LYRICA [Suspect]
     Active Substance: PREGABALIN
     Indication: DIABETIC NEUROPATHY
     Dosage: 150 MG, 3X/DAY
     Route: 048
     Dates: start: 2014
  6. ASPIRIN 81 [Concomitant]
     Active Substance: ASPIRIN
     Dosage: 81 MG, 1X/DAY

REACTIONS (2)
  - Anger [Unknown]
  - Nasopharyngitis [Unknown]
